FAERS Safety Report 9311783 (Version 1)
Quarter: 2013Q1

REPORT INFORMATION
  Report Type: Spontaneous
  Country: JP (occurrence: None)
  Receive Date: 20130212
  Receipt Date: 20130212
  Transmission Date: 20140127
  Serious: Yes (Hospitalization)
  Sender: FDA-Public Use
  Company Number: TCI2012A00501

PATIENT
  Age: 85 Year
  Sex: Female

DRUGS (11)
  1. NESINA [Suspect]
     Indication: DIABETES MELLITUS
     Route: 048
     Dates: start: 20120119, end: 20120203
  2. ACTOS (PIOGLITAZONE HYDROCHLORIDE) [Concomitant]
  3. AMARYL (GLIMEPIRIDE) [Concomitant]
  4. METGLUCO (METFORMIN HYDROCHLORIDE) [Concomitant]
  5. CRESTOR (ROSUVASTATIN CALCIUM) [Concomitant]
  6. EVISTA (RALOXIFENE HYDROCHLORIDE) [Concomitant]
  7. ALFAROL (ALFACALCIDOL) [Concomitant]
  8. ADALAT CR (NIFEDIPINE) [Concomitant]
  9. CO-DIO EX (HYDROCHLOROTHIAZIDE, VALSARTAN) [Concomitant]
  10. ZYLORIC (ALLOPURINOL) [Concomitant]
  11. JUVELA M (TOCOPHERYL NICOTINATE) [Concomitant]

REACTIONS (6)
  - Rhabdomyolysis [None]
  - Pyrexia [None]
  - White blood cell count increased [None]
  - Dysstasia [None]
  - Dehydration [None]
  - Mobility decreased [None]
